FAERS Safety Report 7341213-9 (Version None)
Quarter: 2011Q1

REPORT INFORMATION
  Report Type: 
  Country: None (occurrence: None)
  Receive Date: 20110309
  Receipt Date: 20110303
  Transmission Date: 20110831
  Serious: Yes (Other)
  Sender: FDA-Public Use
  Company Number: GB-BRISTOL-MYERS SQUIBB COMPANY-15516263

PATIENT
  Age: 48 Year
  Sex: Male
  Weight: 83 kg

DRUGS (1)
  1. SPRYCEL [Suspect]
     Indication: CHRONIC MYELOID LEUKAEMIA
     Dosage: RECENTLY RECEVIED ON 05DEC10 ALSO ON 7DEC10+11FEB11 BATCH:9H45561,MAR2012
     Route: 048

REACTIONS (1)
  - SCOTOMA [None]
